FAERS Safety Report 16663125 (Version 1)
Quarter: 2019Q3

REPORT INFORMATION
  Report Type: Report from Study
  Country: US (occurrence: US)
  Receive Date: 20190802
  Receipt Date: 20190802
  Transmission Date: 20191004
  Serious: No
  Sender: FDA-Public Use
  Company Number: US-EXELIXIS-CABO-19020153

PATIENT
  Sex: Male

DRUGS (7)
  1. CABOMETYX [Suspect]
     Active Substance: CABOZANTINIB S-MALATE
     Indication: CARCINOID TUMOUR
     Dosage: 40 MG, QD
     Route: 048
     Dates: start: 20190315
  2. FENTANYL. [Concomitant]
     Active Substance: FENTANYL
  3. DOXYCYCLINE HYCLATE. [Concomitant]
     Active Substance: DOXYCYCLINE HYCLATE
  4. LORAZEPAM. [Concomitant]
     Active Substance: LORAZEPAM
  5. OXYCODONE [Concomitant]
     Active Substance: OXYCODONE
  6. DRONABINOL. [Concomitant]
     Active Substance: DRONABINOL
  7. ZOLPIDEM [Concomitant]
     Active Substance: ZOLPIDEM TARTRATE

REACTIONS (2)
  - Off label use [Unknown]
  - Immunosuppression [Unknown]
